FAERS Safety Report 4759930-3 (Version None)
Quarter: 2005Q3

REPORT INFORMATION
  Report Type: 
  Country: None (occurrence: None)
  Receive Date: 20050902
  Receipt Date: 20050812
  Transmission Date: 20060218
  Serious: Yes (Hospitalization)
  Sender: FDA-Public Use
  Company Number: FR-ABBOTT-05P-056-0308463-00

PATIENT
  Age: 47 Year
  Sex: Male

DRUGS (3)
  1. ZECLAR [Suspect]
     Indication: ULCER
     Route: 048
     Dates: start: 20050620, end: 20050620
  2. AMOXICILLIN [Suspect]
     Indication: ULCER
     Route: 048
     Dates: start: 20050620, end: 20050620
  3. OMEPRAZOLE [Concomitant]
     Indication: ULCER
     Route: 048
     Dates: start: 20050620, end: 20050620

REACTIONS (4)
  - CHOLESTASIS [None]
  - CYTOLYTIC HEPATITIS [None]
  - MYALGIA [None]
  - TRANSAMINASES INCREASED [None]
